FAERS Safety Report 11809958 (Version 1)
Quarter: 2015Q4

REPORT INFORMATION
  Report Type: Spontaneous
  Country: AU (occurrence: AU)
  Receive Date: 20151208
  Receipt Date: 20151208
  Transmission Date: 20160305
  Serious: Yes (Other)
  Sender: FDA-Public Use
  Company Number: PHHY2015AU159099

PATIENT
  Age: 65 Year
  Sex: Female

DRUGS (2)
  1. PAZOPANIB [Suspect]
     Active Substance: PAZOPANIB
     Indication: LEIOMYOSARCOMA METASTATIC
     Route: 065
  2. DOXORUBICIN [Suspect]
     Active Substance: DOXORUBICIN
     Indication: LEIOMYOSARCOMA METASTATIC
     Route: 065

REACTIONS (2)
  - Leiomyosarcoma metastatic [Unknown]
  - Disease progression [Unknown]
